FAERS Safety Report 21722702 (Version 1)
Quarter: 2022Q4

REPORT INFORMATION
  Report Type: Spontaneous
  Country: US (occurrence: None)
  Receive Date: 20221212
  Receipt Date: 20221212
  Transmission Date: 20230113
  Serious: No
  Sender: FDA-Public Use
  Company Number: None

PATIENT
  Sex: Female

DRUGS (1)
  1. CYCLOSPORINE MODIFIED [Suspect]
     Active Substance: CYCLOSPORINE
     Indication: Idiopathic urticaria
     Dosage: FREQUENCY : TWICE A DAY;?
     Route: 048
     Dates: start: 202209

REACTIONS (1)
  - Therapy non-responder [None]
